FAERS Safety Report 13523848 (Version 2)
Quarter: 2017Q3

REPORT INFORMATION
  Report Type: Spontaneous
  Country: US (occurrence: US)
  Receive Date: 20170508
  Receipt Date: 20170810
  Transmission Date: 20171127
  Serious: No
  Sender: FDA-Public Use
  Company Number: US-VIFOR (INTERNATIONAL) INC.-VIT-2017-04255

PATIENT
  Sex: Male

DRUGS (12)
  1. IRON [Concomitant]
     Active Substance: IRON
  2. VELTASSA [Suspect]
     Active Substance: PATIROMER
     Indication: HYPERKALAEMIA
     Route: 048
     Dates: start: 20170308
  3. FUROSEMIDE. [Concomitant]
     Active Substance: FUROSEMIDE
  4. FARXIGA [Concomitant]
     Active Substance: DAPAGLIFLOZIN PROPANEDIOL
  5. SIMVASTATIN. [Concomitant]
     Active Substance: SIMVASTATIN
  6. GLYCERYL TRINITRATE [Concomitant]
     Active Substance: NITROGLYCERIN
  7. ROSUVASTATIN. [Concomitant]
     Active Substance: ROSUVASTATIN
  8. GABAPENTIN. [Concomitant]
     Active Substance: GABAPENTIN
  9. CARVEDILOL. [Concomitant]
     Active Substance: CARVEDILOL
  10. ACETYLSALICYLIC ACID [Concomitant]
     Active Substance: ASPIRIN
  11. RANEXA [Concomitant]
     Active Substance: RANOLAZINE
  12. HUMALOG [Concomitant]
     Active Substance: INSULIN LISPRO

REACTIONS (2)
  - Constipation [Unknown]
  - Product taste abnormal [Unknown]

NARRATIVE: CASE EVENT DATE: 2017
